FAERS Safety Report 4627888-3 (Version None)
Quarter: 2005Q2

REPORT INFORMATION
  Report Type: 
  Country: None (occurrence: None)
  Receive Date: 20050401
  Receipt Date: 20050317
  Transmission Date: 20051028
  Serious: Yes (Hospitalization)
  Sender: FDA-Public Use
  Company Number: 2005BI001888

PATIENT
  Age: 79 Year
  Sex: Female
  Weight: 52.1637 kg

DRUGS (2)
  1. AMEVIVE [Suspect]
     Indication: PSORIASIS
     Dosage: 15 MG; QW; IM
     Route: 030
     Dates: start: 20040317, end: 20040511
  2. ATENOLOL [Concomitant]

REACTIONS (5)
  - BLOOD CREATINE INCREASED [None]
  - BLOOD UREA INCREASED [None]
  - LABORATORY TEST ABNORMAL [None]
  - SKIN GRAFT [None]
  - SKIN ULCER [None]
